FAERS Safety Report 18901965 (Version 5)
Quarter: 2022Q1

REPORT INFORMATION
  Report Type: Spontaneous
  Country: US (occurrence: US)
  Receive Date: 20210216
  Receipt Date: 20220225
  Transmission Date: 20220423
  Serious: Yes (Death, Other)
  Sender: FDA-Public Use
  Company Number: US-PFIZER INC-2021115229

PATIENT
  Age: 85 Year
  Sex: Female

DRUGS (1)
  1. VYNDAMAX [Suspect]
     Active Substance: TAFAMIDIS
     Dosage: 61 MG

REACTIONS (14)
  - Death [Fatal]
  - Nephrolithiasis [Unknown]
  - Dyspnoea [Unknown]
  - Atrial flutter [Unknown]
  - Urinary tract infection [Unknown]
  - Haematuria [Unknown]
  - Back pain [Unknown]
  - Chills [Unknown]
  - Dizziness [Unknown]
  - Fall [Unknown]
  - Contusion [Unknown]
  - Peripheral swelling [Unknown]
  - Cough [Unknown]
  - Weight increased [Unknown]
